FAERS Safety Report 8547073-2 (Version None)
Quarter: 2012Q3

REPORT INFORMATION
  Report Type: 
  Country: None (occurrence: None)
  Receive Date: 20120727
  Receipt Date: 20120216
  Transmission Date: 20120928
  Serious: No
  Sender: FDA-Public Use
  Company Number: US-ASTRAZENECA-2012SE09898

PATIENT
  Age: 50 Year
  Sex: Female

DRUGS (1)
  1. SEROQUEL [Suspect]
     Indication: SLEEP DISORDER
     Route: 048

REACTIONS (5)
  - INSOMNIA [None]
  - ANTICIPATORY ANXIETY [None]
  - OFF LABEL USE [None]
  - DRUG DOSE OMISSION [None]
  - BIPOLAR DISORDER [None]
